FAERS Safety Report 10216980 (Version 2)
Quarter: 2014Q2

REPORT INFORMATION
  Report Type: Spontaneous
  Country: US (occurrence: US)
  Receive Date: 20140604
  Receipt Date: 20140604
  Transmission Date: 20141212
  Serious: Yes (Death)
  Sender: FDA-Public Use
  Company Number: US-SA-2014SA055560

PATIENT
  Sex: Male

DRUGS (2)
  1. LANTUS [Suspect]
     Indication: DIABETES MELLITUS
     Dosage: VIAL DOSE:20 UNIT(S)
     Route: 058
  2. NOVOLOG [Concomitant]

REACTIONS (2)
  - Death [Fatal]
  - Drug administration error [Unknown]
